FAERS Safety Report 4341985-1 (Version None)
Quarter: 2004Q1

REPORT INFORMATION
  Report Type: 
  Country: None (occurrence: None)
  Receive Date: 20040329
  Receipt Date: 20031229
  Transmission Date: 20041129
  Serious: No
  Sender: FDA-Public Use
  Company Number: 04P-163-0246118-00

PATIENT
  Age: 82 Year
  Sex: Female
  Weight: 56.6996 kg

DRUGS (14)
  1. HUMIRA [Suspect]
     Indication: RHEUMATOID ARTHRITIS
     Dosage: SEE IMAGE
     Route: 058
     Dates: start: 20030101, end: 20030801
  2. HUMIRA [Suspect]
     Indication: RHEUMATOID ARTHRITIS
     Dosage: SEE IMAGE
     Route: 058
     Dates: start: 20030801
  3. LEVOTHYROXINE SODIUM [Concomitant]
  4. METHOTREXATE SODIUM [Concomitant]
  5. HYZAAR [Concomitant]
  6. ESOMEPRAZOLE [Concomitant]
  7. PREDNISONE [Concomitant]
  8. FELODIPINE [Concomitant]
  9. HYDROCODONE [Concomitant]
  10. DECYCLONINE [Concomitant]
  11. RISEDRONATE SODIUM [Concomitant]
  12. LOSARTAN POTASSIUM [Concomitant]
  13. FOLIC ACID [Concomitant]
  14. MELOXICAM [Concomitant]

REACTIONS (2)
  - INFECTION [None]
  - VIRAL INFECTION [None]
